FAERS Safety Report 16434001 (Version 4)
Quarter: 2020Q1

REPORT INFORMATION
  Report Type: Spontaneous
  Country: US (occurrence: US)
  Receive Date: 20190614
  Receipt Date: 20200113
  Transmission Date: 20200409
  Serious: Yes (Death, Life-Threatening, Hospitalization, Other)
  Sender: FDA-Public Use
  Company Number: US-GE HEALTHCARE LIFE SCIENCES-2019CSU003062

PATIENT
  Age: 68 Year
  Sex: Female

DRUGS (2)
  1. OPTISON [Suspect]
     Active Substance: ALBUMIN HUMAN
     Indication: CARDIAC FUNCTION TEST
  2. OPTISON [Suspect]
     Active Substance: ALBUMIN HUMAN
     Indication: ECHOCARDIOGRAM
     Dosage: 3 ML, SINGLE
     Route: 042
     Dates: start: 20190606, end: 20190606

REACTIONS (2)
  - Ventricular tachycardia [Fatal]
  - Cardio-respiratory arrest [Recovered/Resolved]

NARRATIVE: CASE EVENT DATE: 20190606
